FAERS Safety Report 5169328-4 (Version None)
Quarter: 2006Q4

REPORT INFORMATION
  Report Type: 
  Country: None (occurrence: None)
  Receive Date: 20061201
  Receipt Date: 20061124
  Transmission Date: 20070319
  Serious: Yes (Hospitalization)
  Sender: FDA-Public Use
  Company Number: 20060040USST

PATIENT
  Age: 15 Year
  Sex: Male

DRUGS (5)
  1. NATULAN [Suspect]
     Indication: HODGKIN'S DISEASE
     Dosage: PO
     Route: 048
     Dates: start: 20060929, end: 20061014
  2. ZOFRAN [Suspect]
     Dosage: PO
     Route: 048
     Dates: end: 20061014
  3. OMEPRAZOLE [Suspect]
     Dosage: 1 DF, PO
     Route: 048
     Dates: start: 20060929, end: 20061014
  4. BACTRIM FORTE (COTRIMOXAZOLE) [Suspect]
     Dosage: PO
     Route: 048
     Dates: start: 20060929, end: 20061014
  5. CACIT VITAMIN D3 (CALCIUM CARBONATE + CHOLECALCIFEROL) [Suspect]
     Dosage: 1 DF, PO
     Route: 048
     Dates: start: 20060929, end: 20061014

REACTIONS (2)
  - PYREXIA [None]
  - RASH MACULO-PAPULAR [None]
